FAERS Safety Report 18112406 (Version 1)
Quarter: 2020Q3

REPORT INFORMATION
  Report Type: Report from Study
  Country: BR (occurrence: BR)
  Receive Date: 20200805
  Receipt Date: 20200805
  Transmission Date: 20201103
  Serious: Yes (Other)
  Sender: FDA-Public Use
  Company Number: NVSC2020BR216573

PATIENT
  Sex: Male

DRUGS (1)
  1. AZORGA SUSPENSION [Suspect]
     Active Substance: BRINZOLAMIDE\TIMOLOL MALEATE
     Indication: PRODUCT USED FOR UNKNOWN INDICATION
     Dosage: UNK, BID (2 TIMES A DAY, EVERY 12 HOURS)
     Route: 047

REACTIONS (2)
  - Condition aggravated [Unknown]
  - Prostatomegaly [Recovering/Resolving]
